FAERS Safety Report 10159236 (Version 1)
Quarter: 2014Q2

REPORT INFORMATION
  Report Type: Spontaneous
  Country: IT (occurrence: IT)
  Receive Date: 20140508
  Receipt Date: 20140508
  Transmission Date: 20141212
  Serious: Yes (Hospitalization)
  Sender: FDA-Public Use
  Company Number: IT-JNJFOC-20140420533

PATIENT
  Age: 51 Year
  Sex: Female

DRUGS (13)
  1. SERENASE [Suspect]
     Indication: DRUG ABUSE
     Route: 048
     Dates: start: 20140313, end: 20140313
  2. RIVOTRIL [Suspect]
     Indication: DRUG ABUSE
     Route: 065
     Dates: start: 20140313, end: 20140313
  3. TAVOR [Suspect]
     Indication: DRUG ABUSE
     Route: 048
     Dates: start: 20140313, end: 20140313
  4. SEROQUEL [Suspect]
     Indication: DRUG ABUSE
     Route: 048
     Dates: start: 20140313, end: 20140313
  5. BISOPROLOL HEMIFUMARATE [Concomitant]
     Route: 048
  6. GABAPENTIN [Concomitant]
     Route: 065
  7. ANTRA [Concomitant]
     Route: 065
  8. COMBIVIR [Concomitant]
     Route: 065
  9. PREZISTA [Concomitant]
     Route: 065
  10. NORVIR [Concomitant]
     Route: 065
  11. FOLINA [Concomitant]
     Route: 065
  12. NEURONTIN [Concomitant]
     Route: 065
  13. BACTRIM [Concomitant]
     Route: 065

REACTIONS (4)
  - Coma [Recovering/Resolving]
  - Acidosis [Recovering/Resolving]
  - Bradypnoea [Recovering/Resolving]
  - Substance abuse [Recovering/Resolving]
